FAERS Safety Report 10553761 (Version 1)
Quarter: 2014Q4

REPORT INFORMATION
  Report Type: Spontaneous
  Country: US (occurrence: None)
  Receive Date: 20141023
  Receipt Date: 20141023
  Transmission Date: 20150529
  Serious: No
  Sender: FDA-Public Use
  Company Number: AP356-01226-SPO-US

PATIENT
  Age: 60 Year
  Sex: Female
  Weight: 98 kg

DRUGS (5)
  1. GLUCOPHAGE (METFORMIN) [Concomitant]
  2. ANASTROZOLE (ANASTROZOLE) [Concomitant]
     Active Substance: ANASTROZOLE
  3. SYNTHROID [Concomitant]
     Active Substance: LEVOTHYROXINE SODIUM
  4. BELVIQ [Suspect]
     Active Substance: LORCASERIN HYDROCHLORIDE
     Indication: WEIGHT DECREASED
     Dosage: 20 MG,  2 IN 1 D, ORAL
     Route: 048
     Dates: start: 20140805
  5. DEPAKOTE [Concomitant]
     Active Substance: DIVALPROEX SODIUM

REACTIONS (1)
  - Weight increased [None]

NARRATIVE: CASE EVENT DATE: 20140812
